FAERS Safety Report 21371660 (Version 1)
Quarter: 2022Q3

REPORT INFORMATION
  Report Type: Spontaneous
  Country: US (occurrence: US)
  Receive Date: 20220923
  Receipt Date: 20220923
  Transmission Date: 20221026
  Serious: Yes (Hospitalization)
  Sender: FDA-Public Use
  Company Number: US-CATALYST PHARMACEUTICALS, INC-2022CAT00218

PATIENT
  Age: 12 Year
  Sex: Female
  Weight: 23.583 kg

DRUGS (6)
  1. FIRDAPSE [Suspect]
     Active Substance: AMIFAMPRIDINE PHOSPHATE
     Indication: Myasthenic syndrome
     Dosage: 10 MG, 3X/DAY
     Route: 048
     Dates: start: 20220405
  2. FIRDAPSE [Suspect]
     Active Substance: AMIFAMPRIDINE PHOSPHATE
     Indication: Muscle atrophy
     Dosage: ONE TABLET (10 MG), 3X/DAY
     Route: 048
     Dates: start: 20220405
  3. CLOBETASOL [Concomitant]
     Active Substance: CLOBETASOL
     Dosage: UNK, AS NEEDED
     Route: 061
  4. ALBUTEROL SULFATE [Concomitant]
     Active Substance: ALBUTEROL SULFATE
     Dosage: UNK, 3X/DAY
  5. ALBUTEROL [Concomitant]
     Active Substance: ALBUTEROL
     Dosage: UNK, 1X/DAY
  6. ACETYLCYSTEINE [Concomitant]
     Active Substance: ACETYLCYSTEINE
     Dosage: UNK, 1X/DAY

REACTIONS (4)
  - Pneumonia bacterial [Recovered/Resolved]
  - COVID-19 [Not Recovered/Not Resolved]
  - Wrong technique in product usage process [Recovered/Resolved]
  - Off label use [Recovered/Resolved]

NARRATIVE: CASE EVENT DATE: 20220405
